FAERS Safety Report 4424749-X (Version None)
Quarter: 2004Q3

REPORT INFORMATION
  Report Type: 
  Country: None (occurrence: None)
  Receive Date: 20040805
  Receipt Date: 20040723
  Transmission Date: 20050211
  Serious: Yes (Hospitalization)
  Sender: FDA-Public Use
  Company Number: US012694

PATIENT
  Age: 35 Year
  Sex: Female

DRUGS (4)
  1. MODIODAL [Suspect]
     Indication: NARCOLEPSY
     Dosage: 2 TAB/CAP QD ORAL
     Route: 048
     Dates: start: 20030101, end: 20040101
  2. EFFEXOR [Suspect]
     Indication: DEPRESSION
     Dosage: 50 MG BID ORAL
     Route: 048
     Dates: start: 20030101, end: 20040101
  3. MODIODAL [Suspect]
     Indication: NARCOLEPSY
     Dosage: 2 TAB/CAP QD ORAL
     Route: 048
     Dates: start: 20040101
  4. EFFEXOR [Suspect]
     Indication: DEPRESSION
     Dosage: 50 MG BID ORAL
     Route: 048
     Dates: start: 20040101

REACTIONS (3)
  - ABNORMAL BEHAVIOUR [None]
  - AGITATION [None]
  - DRUG INTERACTION [None]
